FAERS Safety Report 7190207-5 (Version None)
Quarter: 2010Q4

REPORT INFORMATION
  Report Type: 
  Country: None (occurrence: None)
  Receive Date: 20101213
  Receipt Date: 20101116
  Transmission Date: 20110411
  Serious: Yes (Death)
  Sender: FDA-Public Use
  Company Number: 2010-3831

PATIENT
  Age: 58 Year
  Sex: Male
  Weight: 69 kg

DRUGS (1)
  1. LANREOTIDE OR PLACEBO (LANREOTIDE) (BLINDED STUDY DRUG) [Suspect]
     Indication: NEUROENDOCRINE TUMOUR
     Dosage: 120 MG (120 MG, 1 IN 1 M), SUBCUTANEOUS
     Route: 058
     Dates: start: 20090528

REACTIONS (2)
  - HEPATIC FAILURE [None]
  - SEPSIS [None]
